FAERS Safety Report 23699266 (Version 1)
Quarter: 2024Q2

REPORT INFORMATION
  Report Type: Spontaneous
  Country: BR (occurrence: BR)
  Receive Date: 20240402
  Receipt Date: 20240402
  Transmission Date: 20240716
  Serious: Yes (Other)
  Sender: FDA-Public Use
  Company Number: BR-002147023-NVSC2024BR064288

PATIENT

DRUGS (4)
  1. RUXOLITINIB [Suspect]
     Active Substance: RUXOLITINIB
     Indication: Myelofibrosis
     Dosage: 20 MG, BID (60 TABLETS)
     Route: 065
     Dates: start: 20240306
  2. DIOVAN HCT [Suspect]
     Active Substance: HYDROCHLOROTHIAZIDE\VALSARTAN
     Indication: Product used for unknown indication
     Dosage: UNK, QD (80 MG/12.5 MG)
     Route: 065
  3. BACLON [Concomitant]
     Indication: Product used for unknown indication
     Dosage: 10 MG, BID
     Route: 065
  4. DILTIAZEM [Concomitant]
     Active Substance: DILTIAZEM
     Indication: Product used for unknown indication
     Dosage: 30 MG, QID
     Route: 065

REACTIONS (6)
  - COVID-19 [Unknown]
  - Pain [Unknown]
  - Head discomfort [Unknown]
  - Influenza [Unknown]
  - Intestinal obstruction [Unknown]
  - Abdominal discomfort [Unknown]

NARRATIVE: CASE EVENT DATE: 20240301
